FAERS Safety Report 4433241-8 (Version None)
Quarter: 2004Q3

REPORT INFORMATION
  Report Type: 
  Country: None (occurrence: None)
  Receive Date: 20040826
  Receipt Date: 20040816
  Transmission Date: 20050211
  Serious: Yes (Death)
  Sender: FDA-Public Use
  Company Number: 200418085GDDC

PATIENT
  Age: 65 Year
  Sex: Male
  Weight: 66 kg

DRUGS (4)
  1. TAXOTERE [Suspect]
     Indication: NON-SMALL CELL LUNG CANCER
     Dosage: DOSE: UNK
     Dates: start: 20040621, end: 20040810
  2. CISPLATIN [Suspect]
     Indication: NON-SMALL CELL LUNG CANCER
     Dates: start: 20040621
  3. RADIOTHERAPY [Suspect]
     Indication: NON-SMALL CELL LUNG CANCER
     Dosage: DOSE: UNK
     Dates: start: 20040621
  4. ASPIRIN [Concomitant]

REACTIONS (11)
  - ASPIRATION [None]
  - EPISTAXIS [None]
  - FIBROSIS [None]
  - HAEMOGLOBIN DECREASED [None]
  - MOUTH HAEMORRHAGE [None]
  - NECROSIS [None]
  - OBSTRUCTIVE AIRWAYS DISORDER [None]
  - PLATELET COUNT DECREASED [None]
  - THROMBOSIS [None]
  - TRACHEAL OBSTRUCTION [None]
  - WHITE BLOOD CELL COUNT DECREASED [None]
